FAERS Safety Report 24402833 (Version 2)
Quarter: 2024Q4

REPORT INFORMATION
  Report Type: Spontaneous
  Country: CA (occurrence: CA)
  Receive Date: 20241007
  Receipt Date: 20241010
  Transmission Date: 20250115
  Serious: Yes (Other)
  Sender: ROCHE
  Company Number: CA-ROCHE-10000097591

PATIENT

DRUGS (3)
  1. RITUXIMAB [Suspect]
     Active Substance: RITUXIMAB
     Indication: Waldenstrom^s macroglobulinaemia
     Dosage: THERAPY DURATION: 1.0 YEARS
     Route: 065
  2. ACALABRUTINIB [Suspect]
     Active Substance: ACALABRUTINIB
     Indication: Waldenstrom^s macroglobulinaemia
     Dosage: THERAPY DURATION: 1.0 YEARS
     Route: 065
  3. BENDAMUSTINE HYDROCHLORIDE [Suspect]
     Active Substance: BENDAMUSTINE HYDROCHLORIDE
     Indication: Waldenstrom^s macroglobulinaemia
     Dosage: THERAPY DURATION: 1.0 YEARS
     Route: 065

REACTIONS (1)
  - Intestinal obstruction [Unknown]
